FAERS Safety Report 9213641 (Version 1)
Quarter: 2013Q2

REPORT INFORMATION
  Report Type: Spontaneous
  Country: US (occurrence: None)
  Receive Date: 20130404
  Receipt Date: 20130404
  Transmission Date: 20140414
  Serious: No
  Sender: FDA-Public Use
  Company Number: None

PATIENT
  Age: 50 Year
  Sex: Female
  Weight: 54.43 kg

DRUGS (1)
  1. BOTOX [Suspect]
     Dosage: CUTANEOUS
     Route: 003
     Dates: start: 20121025, end: 20130228

REACTIONS (1)
  - Eyelid ptosis [None]
